FAERS Safety Report 8111372-9 (Version None)
Quarter: 2012Q1

REPORT INFORMATION
  Report Type: 
  Country: None (occurrence: None)
  Receive Date: 20120203
  Receipt Date: 20111013
  Transmission Date: 20120608
  Serious: No
  Sender: FDA-Public Use
  Company Number: US-GLAXOSMITHKLINE-A0948985A

PATIENT
  Sex: Female

DRUGS (6)
  1. LAMOTRIGINE [Suspect]
     Indication: POST-TRAUMATIC STRESS DISORDER
     Dosage: 100MG TWICE PER DAY
     Route: 048
     Dates: start: 20110801, end: 20111007
  2. VYVANSE [Concomitant]
  3. CELEXA [Concomitant]
  4. TOPAMAX [Concomitant]
  5. PRAVASTATIN [Concomitant]
  6. PREMARIN [Concomitant]

REACTIONS (9)
  - PYREXIA [None]
  - TEARFULNESS [None]
  - BALANCE DISORDER [None]
  - MALAISE [None]
  - HEADACHE [None]
  - PARANOIA [None]
  - ANXIETY [None]
  - CONFUSIONAL STATE [None]
  - FATIGUE [None]
